FAERS Safety Report 5979564-2 (Version None)
Quarter: 2008Q4

REPORT INFORMATION
  Report Type: 
  Country: None (occurrence: None)
  Receive Date: 20081204
  Receipt Date: 20081125
  Transmission Date: 20090506
  Serious: Yes (Death, Hospitalization, Other)
  Sender: FDA-Public Use
  Company Number: CA-ELI_LILLY_AND_COMPANY-CA200809003147

PATIENT
  Sex: Female
  Weight: 78 kg

DRUGS (19)
  1. ZYPREXA ZYDIS [Suspect]
     Indication: BIPOLAR DISORDER
     Route: 048
     Dates: start: 20070425
  2. ZYPREXA ZYDIS [Suspect]
     Dosage: 5 MG, EACH EVENING
     Route: 048
  3. ZYPREXA ZYDIS [Suspect]
     Dosage: 7.5 MG, UNK
     Dates: start: 20070706
  4. ASCORBIC ACID [Concomitant]
     Dosage: 500 MG, 2/D
     Route: 048
  5. ZINC GLUCONATE [Concomitant]
     Dosage: 25 MG, 2/D
     Route: 048
  6. SYNTHROID [Concomitant]
     Dosage: 0.025 MG, 4/W
     Route: 048
  7. SYNTHROID [Concomitant]
     Dosage: 0.05 MG, UNK
  8. ESTER-C [Concomitant]
     Dosage: 600 MG, DAILY (1/D)
     Route: 048
  9. PREVACID [Concomitant]
     Dosage: 30 MG, UNK
     Route: 048
  10. METFORMIN HCL [Concomitant]
     Dosage: 500 MG, UNK
  11. METFORMIN HCL [Concomitant]
     Dosage: 1 G, DAILY (1/D)
  12. HALDOL [Concomitant]
     Dates: end: 20061001
  13. ASPIRIN [Concomitant]
     Dosage: 325 MG, DAILY (1/D)
     Route: 048
  14. ELTROXIN [Concomitant]
     Dosage: 0.05 MG, DAILY (1/D)
     Route: 048
  15. MULTI-VITAMIN [Concomitant]
     Dosage: 1 UNK, DAILY (1/D)
     Route: 048
  16. SENOKOT [Concomitant]
     Dosage: 2 UNK, 2/D
     Route: 048
  17. CLOTRIMAZOLE [Concomitant]
     Dosage: UNK, AS NEEDED
  18. TYLENOL /SCH/ [Concomitant]
     Indication: PAIN
     Dosage: 500 MG, AS NEEDED
  19. LACTULOSE [Concomitant]
     Indication: CONSTIPATION
     Dosage: 30 ML, AS NEEDED

REACTIONS (7)
  - COMA [None]
  - CONVULSION [None]
  - DEATH [None]
  - DELIRIUM [None]
  - DEPRESSED LEVEL OF CONSCIOUSNESS [None]
  - PAIN [None]
  - URINARY TRACT INFECTION [None]
